FAERS Safety Report 8822327 (Version 9)
Quarter: 2014Q3

REPORT INFORMATION
  Report Type: Spontaneous
  Country: US (occurrence: US)
  Receive Date: 20121003
  Receipt Date: 20140725
  Transmission Date: 20150326
  Serious: Yes (Hospitalization, Other)
  Sender: FDA-Public Use
  Company Number: US-009507513-1209USA008491

PATIENT
  Sex: Female
  Weight: 47.12 kg

DRUGS (5)
  1. FOSAMAX [Suspect]
     Active Substance: ALENDRONATE SODIUM
     Indication: OSTEOPOROSIS
     Dosage: 10 MG, UNK
     Route: 048
     Dates: start: 1996, end: 20100114
  2. FOSAMAX [Suspect]
     Active Substance: ALENDRONATE SODIUM
     Indication: OSTEOPENIA
     Dosage: 70 MG, QW
     Route: 048
     Dates: start: 20030723, end: 20070917
  3. ALENDRONATE SODIUM. [Suspect]
     Active Substance: ALENDRONATE SODIUM
     Indication: OSTEOPENIA
     Dosage: 70 MG, UNK
     Route: 048
     Dates: start: 20070917, end: 20120628
  4. ALENDRONATE SODIUM. [Suspect]
     Active Substance: ALENDRONATE SODIUM
     Dosage: 70 MG, QW
     Route: 048
     Dates: start: 20120611, end: 201209
  5. ALENDRONATE SODIUM. [Suspect]
     Active Substance: ALENDRONATE SODIUM
     Dosage: 70 MG, QW
     Route: 048
     Dates: start: 20071212, end: 201002

REACTIONS (20)
  - Patella fracture [Unknown]
  - Hyperlipidaemia [Unknown]
  - Tendon rupture [Unknown]
  - Electrocardiogram abnormal [Unknown]
  - Open reduction of fracture [Unknown]
  - Femur fracture [Not Recovered/Not Resolved]
  - Anxiety [Unknown]
  - Fall [Unknown]
  - Fall [Unknown]
  - Internal fixation of fracture [Unknown]
  - Nephrolithiasis [Not Recovered/Not Resolved]
  - Groin pain [Unknown]
  - Low turnover osteopathy [Unknown]
  - Tooth repair [Unknown]
  - Hypokalaemia [Unknown]
  - Insomnia [Unknown]
  - Tendon operation [Unknown]
  - Mitral valve prolapse [Unknown]
  - Renal stone removal [Unknown]
  - Nephrolithiasis [Unknown]

NARRATIVE: CASE EVENT DATE: 1997
